FAERS Safety Report 7954868-2 (Version None)
Quarter: 2011Q4

REPORT INFORMATION
  Report Type: 
  Country: None (occurrence: None)
  Receive Date: 20111202
  Receipt Date: 20111129
  Transmission Date: 20120403
  Serious: Yes (Hospitalization, Other)
  Sender: FDA-Public Use
  Company Number: SE-AMGEN-SWESP2011023529

PATIENT
  Age: 69 Year
  Sex: Female
  Weight: 74 kg

DRUGS (8)
  1. PROLIA [Suspect]
     Indication: OSTEOPOROSIS POSTMENOPAUSAL
     Dosage: 60 MG, QD
     Route: 058
     Dates: start: 20110317
  2. PROLIA [Suspect]
     Dosage: 60 MG, ONE TIME DOSE
     Dates: start: 20110615
  3. PROLIA [Suspect]
     Dosage: 60 MG, ONE TIME DOSE
     Dates: start: 20110616
  4. CITALOPRAM [Concomitant]
     Route: 048
  5. VAGIFEM [Concomitant]
     Route: 067
  6. MELOXICAM [Concomitant]
     Route: 048
  7. OMEPRAZOLE [Concomitant]
     Route: 048
  8. AMLODIPINE BESYLATE [Concomitant]
     Route: 048

REACTIONS (11)
  - VOMITING [None]
  - COLONIC STENOSIS [None]
  - DRUG PRESCRIBING ERROR [None]
  - DIARRHOEA [None]
  - TONGUE DISORDER [None]
  - PRURITUS [None]
  - CONSTIPATION [None]
  - INAPPROPRIATE SCHEDULE OF DRUG ADMINISTRATION [None]
  - ABDOMINAL DISCOMFORT [None]
  - DIVERTICULUM [None]
  - HYPERSENSITIVITY [None]
